FAERS Safety Report 20776177 (Version 3)
Quarter: 2022Q2

REPORT INFORMATION
  Report Type: Report from Study
  Country: US (occurrence: US)
  Receive Date: 20220502
  Receipt Date: 20220630
  Transmission Date: 20220721
  Serious: Yes (Hospitalization, Other)
  Sender: FDA-Public Use
  Company Number: US-BRISTOL-MYERS SQUIBB COMPANY-2022-027696

PATIENT
  Age: 68 Year
  Sex: Female
  Weight: 93.62 kg

DRUGS (1)
  1. REVLIMID [Suspect]
     Active Substance: LENALIDOMIDE
     Indication: Plasma cell myeloma in remission
     Dosage: DAILY FOR 21 DAYS
     Route: 048

REACTIONS (15)
  - Abdominal discomfort [Unknown]
  - Gastritis [Unknown]
  - Pain [Unknown]
  - Confusional state [Unknown]
  - Dehydration [Unknown]
  - Dysphagia [Unknown]
  - Hydronephrosis [Unknown]
  - Lymphoedema [Unknown]
  - Pancreatic disorder [Not Recovered/Not Resolved]
  - Cough [Unknown]
  - Peripheral swelling [Unknown]
  - Joint swelling [Unknown]
  - Renal failure [Unknown]
  - Dyspepsia [Unknown]
  - Iron deficiency [Unknown]
